FAERS Safety Report 16502638 (Version 1)
Quarter: 2019Q3

REPORT INFORMATION
  Report Type: Other
  Country: SI (occurrence: SI)
  Receive Date: 20190701
  Receipt Date: 20190701
  Transmission Date: 20191004
  Serious: Yes (Other)
  Sender: FDA-Public Use
  Company Number: SI-ASTELLAS-2019US026403

PATIENT
  Age: 81 Year
  Sex: Female

DRUGS (1)
  1. BETMIGA [Suspect]
     Active Substance: MIRABEGRON
     Indication: MICTURITION URGENCY
     Route: 048
     Dates: start: 20190528, end: 20190604

REACTIONS (3)
  - Palpitations [Recovering/Resolving]
  - Suffocation feeling [Recovering/Resolving]
  - Hypertension [Recovering/Resolving]

NARRATIVE: CASE EVENT DATE: 20190604
